FAERS Safety Report 10244005 (Version 4)
Quarter: 2015Q2

REPORT INFORMATION
  Report Type: Spontaneous
  Country: US (occurrence: US)
  Receive Date: 20140618
  Receipt Date: 20150504
  Transmission Date: 20150821
  Serious: Yes (Hospitalization, Disabling)
  Sender: FDA-Public Use
  Company Number: US-009507513-1406USA007418

PATIENT
  Sex: Male

DRUGS (2)
  1. PROPECIA [Suspect]
     Active Substance: FINASTERIDE
     Dosage: 1 MG, QD
     Route: 048
     Dates: start: 20070825, end: 20070903
  2. PROPECIA [Suspect]
     Active Substance: FINASTERIDE
     Indication: ANDROGENETIC ALOPECIA
     Dosage: 1 MG, QD
     Route: 048
     Dates: start: 20051005, end: 20051028

REACTIONS (36)
  - Loss of libido [Not Recovered/Not Resolved]
  - Upper respiratory tract infection [Unknown]
  - Malaise [Unknown]
  - Headache [Unknown]
  - Irritability [Unknown]
  - Anxiety [Not Recovered/Not Resolved]
  - Insomnia [Not Recovered/Not Resolved]
  - Muscle tightness [Unknown]
  - Memory impairment [Unknown]
  - Temperature intolerance [Unknown]
  - Arrhythmia [Unknown]
  - Pollakiuria [Unknown]
  - Back pain [Not Recovered/Not Resolved]
  - Testicular pain [Not Recovered/Not Resolved]
  - Asthenia [Unknown]
  - Psychiatric symptom [Unknown]
  - Food craving [Unknown]
  - Organic erectile dysfunction [Not Recovered/Not Resolved]
  - Arthralgia [Unknown]
  - Fatigue [Not Recovered/Not Resolved]
  - Hypogonadism [Unknown]
  - Confusional state [Not Recovered/Not Resolved]
  - Cognitive disorder [Not Recovered/Not Resolved]
  - Ejaculation failure [Not Recovered/Not Resolved]
  - Muscular weakness [Unknown]
  - Dyspnoea [Unknown]
  - Constipation [Unknown]
  - Depression [Not Recovered/Not Resolved]
  - Schizophrenia, undifferentiated type [Unknown]
  - Feeling abnormal [Not Recovered/Not Resolved]
  - Sexual dysfunction [Not Recovered/Not Resolved]
  - Ejaculation disorder [Not Recovered/Not Resolved]
  - Blood testosterone decreased [Not Recovered/Not Resolved]
  - Hypoaesthesia [Unknown]
  - Myalgia [Unknown]
  - Visual impairment [Unknown]

NARRATIVE: CASE EVENT DATE: 200510
